FAERS Safety Report 22158496 (Version 4)
Quarter: 2025Q3

REPORT INFORMATION
  Report Type: Report from Study
  Country: US (occurrence: US)
  Receive Date: 20230331
  Receipt Date: 20250829
  Transmission Date: 20251021
  Serious: Yes (Life-Threatening, Other)
  Sender: AMGEN
  Company Number: US-AMGEN-USASP2023055251

PATIENT
  Age: 70 Year
  Sex: Female

DRUGS (4)
  1. ENBREL [Suspect]
     Active Substance: ETANERCEPT
     Indication: Rheumatoid arthritis
     Dosage: 50 MILLIGRAM, QWK
     Route: 058
  2. ENBREL [Suspect]
     Active Substance: ETANERCEPT
     Indication: Osteoarthritis
     Dosage: UNK UNK, QWK
     Route: 065
     Dates: start: 2022, end: 2024
  3. ENBREL [Suspect]
     Active Substance: ETANERCEPT
     Route: 065
     Dates: start: 202508
  4. METHOTREXATE [Concomitant]
     Active Substance: METHOTREXATE

REACTIONS (17)
  - Device related infection [Unknown]
  - Femur fracture [Unknown]
  - Chronic kidney disease [Unknown]
  - Fall [Unknown]
  - Infection [Unknown]
  - COVID-19 [Recovered/Resolved]
  - Decreased immune responsiveness [Unknown]
  - Hypertension [Unknown]
  - Abdominal pain upper [Recovered/Resolved]
  - Pollakiuria [Unknown]
  - Mobility decreased [Unknown]
  - Neck mass [Unknown]
  - Limb mass [Unknown]
  - Rash [Unknown]
  - Urinary tract infection [Unknown]
  - Tooth disorder [Unknown]
  - Drug monitoring procedure not performed [Unknown]

NARRATIVE: CASE EVENT DATE: 20240101
